FAERS Safety Report 20774863 (Version 1)
Quarter: 2022Q2

REPORT INFORMATION
  Report Type: Spontaneous
  Country: US (occurrence: None)
  Receive Date: 20220501
  Receipt Date: 20220501
  Transmission Date: 20220721
  Serious: Yes (Hospitalization)
  Sender: FDA-Public Use
  Company Number: None

PATIENT
  Age: 76 Year
  Sex: Female

DRUGS (11)
  1. AMOXICILLIN\CLAVULANIC ACID [Suspect]
     Active Substance: AMOXICILLIN\CLAVULANIC ACID
     Indication: Cough
     Dosage: FREQUENCY : TWICE A DAY;?
     Route: 048
  2. calcium carbonate/vitamin d 600-400 mg-unit tablet [Concomitant]
  3. diclofenac 1% external gel [Concomitant]
  4. ergocalciferol 200mcg/mL oral solution [Concomitant]
  5. ESCITALOPRAM OXALATE [Concomitant]
     Active Substance: ESCITALOPRAM OXALATE
  6. GABAPENTIN [Concomitant]
     Active Substance: GABAPENTIN
  7. LEVOTHYROXINE [Concomitant]
     Active Substance: LEVOTHYROXINE
  8. LIDOCAINE [Concomitant]
     Active Substance: LIDOCAINE
  9. magnesium hydroxide capsule [Concomitant]
  10. mutlivitamin tablet [Concomitant]
  11. turmeric capsule [Concomitant]

REACTIONS (4)
  - Swelling face [None]
  - Lip swelling [None]
  - Pruritus [None]
  - Drug hypersensitivity [None]

NARRATIVE: CASE EVENT DATE: 20211205
